FAERS Safety Report 7091299-4 (Version None)
Quarter: 2010Q4

REPORT INFORMATION
  Report Type: 
  Country: None (occurrence: None)
  Receive Date: 20101101
  Receipt Date: 20101019
  Transmission Date: 20110411
  Serious: Yes (Other)
  Sender: FDA-Public Use
  Company Number: 2010MA003742

PATIENT
  Sex: Male

DRUGS (1)
  1. METOCLOPRAMIDE [Suspect]
     Dosage: PO
     Route: 048
     Dates: start: 20010701, end: 20090920

REACTIONS (5)
  - INJURY [None]
  - PARKINSON'S DISEASE [None]
  - RESTLESS LEGS SYNDROME [None]
  - TARDIVE DYSKINESIA [None]
  - TREMOR [None]
